FAERS Safety Report 24715993 (Version 2)
Quarter: 2024Q4

REPORT INFORMATION
  Report Type: Spontaneous
  Country: US (occurrence: US)
  Receive Date: 20241210
  Receipt Date: 20241218
  Transmission Date: 20250114
  Serious: Yes (Life-Threatening, Other)
  Sender: ALKEM
  Company Number: US-ALKEM LABORATORIES LIMITED-US-ALKEM-2024-25727

PATIENT
  Age: 72 Year
  Sex: Male

DRUGS (2)
  1. GABAPENTIN [Suspect]
     Active Substance: GABAPENTIN
     Indication: Product used for unknown indication
     Dosage: 600 MILLIGRAM, TID
     Route: 065
  2. GABAPENTIN [Suspect]
     Active Substance: GABAPENTIN
     Dosage: UNK (DOSE DECREASED)
     Route: 065

REACTIONS (6)
  - Neurotoxicity [Recovered/Resolved]
  - Azotaemia [Recovered/Resolved]
  - Uraemic encephalopathy [Recovered/Resolved]
  - Myoclonus [Recovered/Resolved]
  - Drug level increased [Recovering/Resolving]
  - Mental status changes [Recovered/Resolved]
